FAERS Safety Report 18884407 (Version 1)
Quarter: 2021Q1

REPORT INFORMATION
  Report Type: Spontaneous
  Country: GB (occurrence: GB)
  Receive Date: 20210211
  Receipt Date: 20210211
  Transmission Date: 20210420
  Serious: Yes (Life-Threatening, Hospitalization, Other)
  Sender: FDA-Public Use
  Company Number: GB-SUN PHARMACEUTICAL INDUSTRIES LTD-2021RR-280352

PATIENT
  Age: 15 Year
  Sex: Male

DRUGS (1)
  1. ISOTRETINOIN. [Suspect]
     Active Substance: ISOTRETINOIN
     Indication: ACNE
     Dosage: 60MG OD
     Route: 048
     Dates: start: 20201117, end: 20210124

REACTIONS (2)
  - Intentional overdose [Recovered/Resolved]
  - Suicidal behaviour [Not Recovered/Not Resolved]

NARRATIVE: CASE EVENT DATE: 20210125
